FAERS Safety Report 19846611 (Version 1)
Quarter: 2021Q3

REPORT INFORMATION
  Report Type: Spontaneous
  Country: CA (occurrence: CA)
  Receive Date: 20210917
  Receipt Date: 20210917
  Transmission Date: 20211014
  Serious: Yes (Hospitalization, Other)
  Sender: FDA-Public Use
  Company Number: CA-TEVA-2021-CA-1952658

PATIENT
  Age: 56 Year
  Sex: Female

DRUGS (25)
  1. FOSAMAX [Suspect]
     Active Substance: ALENDRONATE SODIUM
     Route: 065
  2. HUMIRA [Suspect]
     Active Substance: ADALIMUMAB
     Indication: PRODUCT USED FOR UNKNOWN INDICATION
     Route: 058
  3. ORENCIA [Suspect]
     Active Substance: ABATACEPT
     Indication: RHEUMATOID ARTHRITIS
     Route: 065
  4. CICLOSPORIN [Concomitant]
     Active Substance: CYCLOSPORINE
     Indication: PRODUCT USED FOR UNKNOWN INDICATION
  5. GOLD SODIUM THIOMALATE [Concomitant]
     Active Substance: GOLD SODIUM THIOMALATE
  6. MYOCHRYSINE [Concomitant]
     Active Substance: GOLD SODIUM THIOMALATE
     Indication: RASH
  7. PREDNISOLONE. [Concomitant]
     Active Substance: PREDNISOLONE
     Indication: PRODUCT USED FOR UNKNOWN INDICATION
  8. RITUXIMAB. [Suspect]
     Active Substance: RITUXIMAB
     Indication: RHEUMATOID ARTHRITIS
     Dosage: 200 MILLIGRAM DAILY;
     Route: 042
  9. ALENDRONATE SODIUM. [Suspect]
     Active Substance: ALENDRONATE SODIUM
     Indication: RHEUMATOID ARTHRITIS
     Route: 065
  10. CODEINE [Suspect]
     Active Substance: CODEINE
     Indication: PRODUCT USED FOR UNKNOWN INDICATION
     Route: 065
  11. ENBREL [Suspect]
     Active Substance: ETANERCEPT
     Indication: RHEUMATOID ARTHRITIS
     Route: 065
  12. REMICADE [Suspect]
     Active Substance: INFLIXIMAB
     Indication: RHEUMATOID ARTHRITIS
     Route: 042
  13. METHOTREXATE. [Suspect]
     Active Substance: METHOTREXATE
     Indication: RHEUMATOID ARTHRITIS
     Route: 048
  14. XELJANZ [Concomitant]
     Active Substance: TOFACITINIB CITRATE
     Indication: RHEUMATOID ARTHRITIS
     Dosage: 10 MILLIGRAM DAILY;
     Route: 048
  15. LEFLUNOMIDE. [Suspect]
     Active Substance: LEFLUNOMIDE
     Indication: RHEUMATOID ARTHRITIS
  16. SULFASALAZINE. [Suspect]
     Active Substance: SULFASALAZINE
     Indication: RHEUMATOID ARTHRITIS
     Route: 065
  17. PREDNISONE. [Concomitant]
     Active Substance: PREDNISONE
     Indication: PRODUCT USED FOR UNKNOWN INDICATION
     Dosage: 10 MILLIGRAM DAILY;
  18. LEFLUNOMIDE. [Suspect]
     Active Substance: LEFLUNOMIDE
     Indication: PRODUCT USED FOR UNKNOWN INDICATION
     Route: 065
  19. FOSAMAX [Suspect]
     Active Substance: ALENDRONATE SODIUM
     Indication: RHEUMATOID ARTHRITIS
     Route: 065
  20. HYDROXYCHLOROQUINE SULFATE. [Suspect]
     Active Substance: HYDROXYCHLOROQUINE SULFATE
     Indication: RHEUMATOID ARTHRITIS
     Route: 065
  21. RITUXIMAB. [Suspect]
     Active Substance: RITUXIMAB
     Indication: PRODUCT USED FOR UNKNOWN INDICATION
     Dosage: 2000 MILLIGRAM DAILY;
     Route: 042
  22. METHOTREXATE. [Suspect]
     Active Substance: METHOTREXATE
     Route: 048
  23. ACTEMRA [Suspect]
     Active Substance: TOCILIZUMAB
     Indication: RHEUMATOID ARTHRITIS
     Route: 065
  24. ACTEMRA [Suspect]
     Active Substance: TOCILIZUMAB
     Route: 065
  25. HUMIRA [Suspect]
     Active Substance: ADALIMUMAB
     Indication: RHEUMATOID ARTHRITIS
     Route: 058

REACTIONS (19)
  - Hypercalcaemia [Recovered/Resolved]
  - Infusion related reaction [Recovered/Resolved]
  - Contraindicated product administered [Recovered/Resolved]
  - Erythema [Recovered/Resolved]
  - Granuloma skin [Recovered/Resolved]
  - Peripheral swelling [Recovered/Resolved]
  - Alanine aminotransferase increased [Recovered/Resolved]
  - Aspartate aminotransferase increased [Recovered/Resolved]
  - Rheumatoid arthritis [Recovered/Resolved]
  - Drug ineffective [Recovered/Resolved]
  - Basal cell carcinoma [Recovered/Resolved]
  - Skin ulcer [Recovered/Resolved]
  - Blood parathyroid hormone decreased [Recovered/Resolved]
  - Drug hypersensitivity [Recovered/Resolved]
  - Rash [Recovered/Resolved]
  - Panniculitis [Recovered/Resolved]
  - Rash pruritic [Recovered/Resolved]
  - Drug eruption [Recovered/Resolved]
  - Rheumatoid nodule [Recovered/Resolved]
